FAERS Safety Report 9195146 (Version 1)
Quarter: 2013Q1

REPORT INFORMATION
  Report Type: Spontaneous
  Country: US (occurrence: US)
  Receive Date: 20130328
  Receipt Date: 20130328
  Transmission Date: 20140127
  Serious: No
  Sender: FDA-Public Use
  Company Number: US-ALLERGAN-1301470US

PATIENT
  Age: 66 Year
  Sex: Female

DRUGS (2)
  1. LATISSE 0.03% [Suspect]
     Indication: GROWTH OF EYELASHES
     Dosage: 2 GTT, QOD
     Route: 061
     Dates: start: 201211
  2. MEDICATIONS NOS [Concomitant]

REACTIONS (8)
  - Eye disorder [Unknown]
  - Inappropriate schedule of drug administration [Unknown]
  - Foreign body sensation in eyes [Unknown]
  - Wrong technique in drug usage process [Unknown]
  - Ocular hyperaemia [Not Recovered/Not Resolved]
  - Erythema of eyelid [Unknown]
  - Scleral hyperaemia [Unknown]
  - Vision blurred [Unknown]
